FAERS Safety Report 14664257 (Version 1)
Quarter: 2018Q1

REPORT INFORMATION
  Report Type: Spontaneous
  Country: US (occurrence: US)
  Receive Date: 20180318
  Receipt Date: 20180318
  Transmission Date: 20180509
  Serious: No
  Sender: FDA-Public Use
  Company Number: None

PATIENT
  Age: 10 Year
  Sex: Male
  Weight: 35.1 kg

DRUGS (2)
  1. METHYLPHENIDATE ER 18MG [Suspect]
     Active Substance: METHYLPHENIDATE
     Indication: ATTENTION DEFICIT/HYPERACTIVITY DISORDER
     Dosage: ?          QUANTITY:1 TABLET(S);?
     Route: 048
  2. METATONIN AT NIGHT [Concomitant]

REACTIONS (4)
  - Restlessness [None]
  - Product substitution issue [None]
  - Disturbance in attention [None]
  - Abnormal behaviour [None]

NARRATIVE: CASE EVENT DATE: 20180108
